FAERS Safety Report 17453897 (Version 1)
Quarter: 2020Q1

REPORT INFORMATION
  Report Type: Spontaneous
  Country: GB (occurrence: GB)
  Receive Date: 20200224
  Receipt Date: 20200224
  Transmission Date: 20200409
  Serious: Yes (Other)
  Sender: FDA-Public Use
  Company Number: GB-SAMSUNG BIOEPIS-SB-2020-05787

PATIENT
  Age: 53 Year
  Sex: Female

DRUGS (3)
  1. INFLIXIMAB [Suspect]
     Active Substance: INFLIXIMAB
     Indication: DRUG-INDUCED LIVER INJURY
     Dosage: 2 CYCLES
     Route: 065
  2. PREDNISOLONE. [Concomitant]
     Active Substance: PREDNISOLONE
     Indication: DRUG-INDUCED LIVER INJURY
     Route: 065
  3. METHYLPREDNISOLONE. [Concomitant]
     Active Substance: METHYLPREDNISOLONE
     Indication: DRUG-INDUCED LIVER INJURY
     Route: 042

REACTIONS (3)
  - Off label use [Unknown]
  - Hepatic mass [Unknown]
  - Hepatic fibrosis [Unknown]
